FAERS Safety Report 9222224 (Version 2)
Quarter: 2013Q2

REPORT INFORMATION
  Report Type: Report from Study
  Country: BR (occurrence: BR)
  Receive Date: 20130410
  Receipt Date: 20130611
  Transmission Date: 20140414
  Serious: Yes (Hospitalization, Other)
  Sender: FDA-Public Use
  Company Number: PHHY2013BR034447

PATIENT
  Sex: Male

DRUGS (16)
  1. FORASEQ [Suspect]
     Indication: DYSPNOEA
     Dosage: 2 DF, Q12H
     Dates: start: 200207
  2. TRILEPTAL [Suspect]
     Indication: CONVULSION
     Dosage: 1 DF, DAILY
     Route: 048
     Dates: start: 2012
  3. INSULIN NPH//INSULIN ISOPHANE BOVINE [Concomitant]
     Indication: DIABETES MELLITUS
     Dosage: 2 DF, DAILY
     Route: 058
  4. INSULIN [Concomitant]
     Indication: DIABETES MELLITUS
     Dosage: 2 DF, DAILY
     Route: 058
  5. SOMALGIN [Concomitant]
     Indication: CEREBROVASCULAR ACCIDENT
     Dosage: 1 DF, DAILY
     Route: 048
  6. SUSTRATE [Concomitant]
     Indication: CARDIAC DISORDER
     Dosage: 3 DF, DAILY
     Route: 048
  7. CONCOR [Concomitant]
     Indication: CARDIAC DISORDER
     Dosage: 2 DF, DAILY
     Route: 048
  8. ATLANSIL ^ROEMMERS^ [Concomitant]
     Indication: CARDIAC DISORDER
     Dosage: 1 DF, DAILY
     Route: 048
  9. LIPITOR [Concomitant]
     Indication: BLOOD CHOLESTEROL ABNORMAL
     Dosage: 1 DF, DAILY
     Route: 048
  10. LIPITOR [Concomitant]
     Indication: BLOOD TRIGLYCERIDES ABNORMAL
  11. ZYLORIC [Concomitant]
     Indication: BLOOD URIC ACID ABNORMAL
     Dosage: 1 DF, DAILY
     Route: 048
  12. LASIX [Concomitant]
     Indication: DIURETIC THERAPY
     Dosage: 2 DF, DAILY
     Route: 048
  13. PROZAC [Concomitant]
     Indication: STRESS
     Dosage: 1 DF, DAILY
     Route: 048
  14. PURAN T4 [Concomitant]
     Indication: THYROID DISORDER
     Dosage: 1 DF, DAILY
     Route: 048
  15. LEVAMLODIPINE [Concomitant]
     Indication: HYPERTENSION
     Dosage: 1 DF, DAILY
     Route: 048
  16. DIGOXIN [Concomitant]
     Indication: CARDIAC DISORDER
     Dosage: 0.5 DF, DAILY (0.5 DF, FROM MONDAY TO FRIDAY)
     Route: 048

REACTIONS (3)
  - Hypertension [Recovered/Resolved]
  - Dyspnoea [Recovered/Resolved]
  - Increased bronchial secretion [Recovered/Resolved]
